FAERS Safety Report 5369825-2 (Version None)
Quarter: 2007Q2

REPORT INFORMATION
  Report Type: 
  Country: None (occurrence: None)
  Receive Date: 20070621
  Receipt Date: 20070607
  Transmission Date: 20071010
  Serious: Yes (Hospitalization)
  Sender: FDA-Public Use
  Company Number: S07-IRL-02108-01

PATIENT
  Age: 74 Year
  Sex: Female

DRUGS (8)
  1. LEXAPRO [Suspect]
     Indication: DEPRESSION
     Dosage: 10 MG QD PO
     Route: 048
     Dates: start: 20040810, end: 20070101
  2. DIGOXIN [Concomitant]
  3. LANSOPRAZOLE [Concomitant]
  4. METOPROLOL SUCCINATE [Concomitant]
  5. DOXAZOSIN MESYLATE [Concomitant]
  6. FERROUS FUMARATE [Concomitant]
  7. MONTELUKAST SODIUM [Concomitant]
  8. WARFARIN SODIUM [Concomitant]

REACTIONS (7)
  - ARRHYTHMIA [None]
  - DEPRESSION [None]
  - DIET REFUSAL [None]
  - LOWER RESPIRATORY TRACT INFECTION [None]
  - MENINGITIS [None]
  - SEROTONIN SYNDROME [None]
  - WEIGHT DECREASED [None]
